FAERS Safety Report 19798159 (Version 1)
Quarter: 2021Q3

REPORT INFORMATION
  Report Type: Spontaneous
  Country: US (occurrence: US)
  Receive Date: 20210901
  Receipt Date: 20210901
  Transmission Date: 20211014
  Serious: Yes (Hospitalization)
  Sender: FDA-Public Use
  Company Number: None

PATIENT
  Sex: Female

DRUGS (1)
  1. MYCOPHENOLATE 250MG ROXANE [Suspect]
     Active Substance: MYCOPHENOLATE MOFETIL
     Indication: ARTERITIS
     Route: 048
     Dates: start: 202104

REACTIONS (2)
  - Autoimmune disorder [None]
  - Condition aggravated [None]
